FAERS Safety Report 8831650 (Version 1)
Quarter: 2012Q4

REPORT INFORMATION
  Report Type: 
  Country: GR (occurrence: GR)
  Receive Date: 20121009
  Receipt Date: 20121009
  Transmission Date: 20130627
  Serious: Yes (Hospitalization)
  Sender: FDA-Public Use
  Company Number: PHHY2012GR084244

PATIENT
  Age: 62 Year
  Sex: Male

DRUGS (1)
  1. STALEVO [Suspect]
     Indication: PARKINSON^S DISEASE
     Dosage: 150 mg, Four times daily
     Route: 048

REACTIONS (4)
  - Aspiration [Unknown]
  - Wrong technique in drug usage process [Unknown]
  - Dysphagia [Unknown]
  - Parkinson^s disease [None]
